FAERS Safety Report 8621619-8 (Version None)
Quarter: 2012Q3

REPORT INFORMATION
  Report Type: 
  Country: None (occurrence: None)
  Receive Date: 20120820
  Receipt Date: 20120820
  Transmission Date: 20120928
  Serious: No
  Sender: FDA-Public Use
  Company Number: None

PATIENT
  Weight: 84.8 kg

DRUGS (5)
  1. POTASSIUM [Concomitant]
  2. PACLITAXEL [Suspect]
     Dates: start: 20120213
  3. CARBOPLATIN [Suspect]
     Dates: start: 20120206
  4. VERAPAMIL [Concomitant]
  5. REGLAN [Concomitant]

REACTIONS (5)
  - PLEURAL EFFUSION [None]
  - ASTHENIA [None]
  - FATIGUE [None]
  - RASH [None]
  - ACUTE RESPIRATORY DISTRESS SYNDROME [None]
